FAERS Safety Report 18797639 (Version 2)
Quarter: 2021Q1

REPORT INFORMATION
  Report Type: Spontaneous
  Country: PT (occurrence: PT)
  Receive Date: 20210127
  Receipt Date: 20210203
  Transmission Date: 20210419
  Serious: Yes (Hospitalization, Other)
  Sender: FDA-Public Use
  Company Number: PT-AUROBINDO-AUR-APL-2021-002778

PATIENT
  Age: 44 Year
  Sex: Male

DRUGS (1)
  1. ACICLOVIR POWDER FOR SOLUTION FOR INFUSION [Suspect]
     Active Substance: ACYCLOVIR SODIUM
     Indication: ENCEPHALITIS VIRAL
     Dosage: 10 MILLIGRAM/KILOGRAM, 3 TIMES A DAY (EVERY 8 HOURS)
     Route: 042

REACTIONS (2)
  - Central nervous system lesion [Recovered/Resolved]
  - Encephalopathy [Recovered/Resolved]
